FAERS Safety Report 18517511 (Version 13)
Quarter: 2023Q4

REPORT INFORMATION
  Report Type: Report from Study
  Country: US (occurrence: US)
  Receive Date: 20201118
  Receipt Date: 20231120
  Transmission Date: 20240110
  Serious: Yes (Hospitalization, Other)
  Sender: FDA-Public Use
  Company Number: US-TAKEDA-US202027191

PATIENT
  Age: 66 Year
  Sex: Female

DRUGS (2)
  1. HUMAN IMMUNOGLOBULIN G\HYALURONIDASE RECOMBINANT HUMAN [Suspect]
     Active Substance: HUMAN IMMUNOGLOBULIN G\HYALURONIDASE (HUMAN RECOMBINANT)
     Indication: Primary immunodeficiency syndrome
     Dosage: UNK
     Route: 065
  2. HUMAN IMMUNOGLOBULIN G\HYALURONIDASE RECOMBINANT HUMAN [Suspect]
     Active Substance: HUMAN IMMUNOGLOBULIN G\HYALURONIDASE (HUMAN RECOMBINANT)
     Indication: Immunodeficiency common variable

REACTIONS (18)
  - Sepsis [Unknown]
  - Autoimmune disorder [Recovering/Resolving]
  - Gastrointestinal disorder [Recovering/Resolving]
  - Behcet^s syndrome [Recovering/Resolving]
  - Bone marrow disorder [Unknown]
  - Gastrointestinal viral infection [Unknown]
  - Lymphoedema [Unknown]
  - Ear infection [Unknown]
  - Insurance issue [Unknown]
  - Blood pressure fluctuation [Unknown]
  - Pleurisy [Recovered/Resolved]
  - Tooth fracture [Unknown]
  - Corneal disorder [Unknown]
  - Liver function test abnormal [Unknown]
  - Abdominal pain [Unknown]
  - Rash [Unknown]
  - Fatigue [Unknown]
  - Product dose omission issue [Unknown]

NARRATIVE: CASE EVENT DATE: 20221229
